FAERS Safety Report 17441256 (Version 1)
Quarter: 2020Q1

REPORT INFORMATION
  Report Type: Spontaneous
  Country: US (occurrence: US)
  Receive Date: 20200220
  Receipt Date: 20200220
  Transmission Date: 20200409
  Serious: No
  Sender: FDA-Public Use
  Company Number: US-SA-2020SA036447

PATIENT
  Sex: Male

DRUGS (2)
  1. DUPIXENT [Suspect]
     Active Substance: DUPILUMAB
     Indication: ASTHMA
     Dosage: 600 MG, 1X
  2. XOLAIR [Suspect]
     Active Substance: OMALIZUMAB

REACTIONS (3)
  - Urticaria [Unknown]
  - Product use issue [Unknown]
  - Type IV hypersensitivity reaction [Unknown]
